FAERS Safety Report 20784636 (Version 1)
Quarter: 2022Q2

REPORT INFORMATION
  Report Type: Spontaneous
  Country: US (occurrence: US)
  Receive Date: 20220504
  Receipt Date: 20220504
  Transmission Date: 20220721
  Serious: No
  Sender: FDA-Public Use
  Company Number: US-PFIZER INC-202101326377

PATIENT
  Age: 30 Year
  Sex: Female

DRUGS (1)
  1. CEFPODOXIME [Suspect]
     Active Substance: CEFPODOXIME
     Dosage: UNK

REACTIONS (2)
  - Drug hypersensitivity [Unknown]
  - Swollen tongue [Unknown]
